FAERS Safety Report 9648659 (Version 1)
Quarter: 2013Q4

REPORT INFORMATION
  Report Type: Spontaneous
  Country: US (occurrence: None)
  Receive Date: 20131025
  Receipt Date: 20131025
  Transmission Date: 20140711
  Serious: Yes (Other)
  Sender: FDA-Public Use
  Company Number: None

PATIENT
  Age: 47 Year
  Sex: Female
  Weight: 68.95 kg

DRUGS (3)
  1. HYDROCODONE [Suspect]
     Indication: DENTAL CARE
     Dates: start: 20130306, end: 20130316
  2. METHYLPREDNISOLONE [Suspect]
  3. AMOXICILLIN [Suspect]

REACTIONS (11)
  - Malaise [None]
  - Pyrexia [None]
  - Oropharyngeal pain [None]
  - Lymphadenopathy [None]
  - Facial pain [None]
  - Pain in jaw [None]
  - Pain in extremity [None]
  - Pain in extremity [None]
  - Pain [None]
  - Neck pain [None]
  - Fatigue [None]
